FAERS Safety Report 4999745-4 (Version None)
Quarter: 2006Q2

REPORT INFORMATION
  Report Type: 
  Country: None (occurrence: None)
  Receive Date: 20060511
  Receipt Date: 20060427
  Transmission Date: 20061013
  Serious: Yes (Other)
  Sender: FDA-Public Use
  Company Number: GB-GLAXOSMITHKLINE-B0421725A

PATIENT
  Sex: Female

DRUGS (3)
  1. AMOXIL [Suspect]
     Dosage: 3G UNKNOWN
     Route: 048
     Dates: start: 20060120, end: 20060120
  2. ASPIRIN [Concomitant]
     Route: 065
  3. BETA-BLOCKERS [Concomitant]

REACTIONS (2)
  - ERYTHEMA [None]
  - SWELLING FACE [None]
